FAERS Safety Report 6458695-7 (Version None)
Quarter: 2009Q4

REPORT INFORMATION
  Report Type: 
  Country: None (occurrence: None)
  Receive Date: 20091120
  Receipt Date: 20091109
  Transmission Date: 20100525
  Serious: Yes (Hospitalization)
  Sender: FDA-Public Use
  Company Number: CAP09000321

PATIENT
  Age: 84 Year
  Sex: Female

DRUGS (3)
  1. ASACOL [Suspect]
     Dosage: 800 MG, ORAL
     Route: 048
     Dates: start: 19940101, end: 20090701
  2. ALL OTHER THERAPEUTIC PRODUCTS [Concomitant]
  3. CHOLESTEROL-AND TRIGLYCERIDE REDUCERS [Concomitant]

REACTIONS (7)
  - ABASIA [None]
  - DEMENTIA [None]
  - DIARRHOEA [None]
  - DYSPHAGIA [None]
  - FALL [None]
  - HEAD INJURY [None]
  - UPPER LIMB FRACTURE [None]
